FAERS Safety Report 7056643-2 (Version None)
Quarter: 2010Q4

REPORT INFORMATION
  Report Type: 
  Country: None (occurrence: None)
  Receive Date: 20101019
  Receipt Date: 20101006
  Transmission Date: 20110411
  Serious: Yes (Death)
  Sender: FDA-Public Use
  Company Number: KV201000318

PATIENT
  Age: 80 Year
  Sex: Female

DRUGS (5)
  1. PREDNISOLONE [Suspect]
     Indication: TEMPORAL ARTERITIS
     Dosage: 40 MG, QD; 60 MG, QD
  2. PREDNISOLONE [Suspect]
     Indication: TEMPORAL ARTERITIS
     Dosage: 40 MG, QD; 60 MG, QD
  3. DIPYRIDAMOLE [Concomitant]
  4. METHYLPREDNISOLONE [Concomitant]
  5. ASPIRIN [Concomitant]

REACTIONS (11)
  - CAROTID ARTERIOSCLEROSIS [None]
  - CEREBELLAR INFARCTION [None]
  - CEREBRAL INFARCTION [None]
  - COORDINATION ABNORMAL [None]
  - DIZZINESS [None]
  - HEMIANOPIA [None]
  - HEMIPARESIS [None]
  - NYSTAGMUS [None]
  - SOMNOLENCE [None]
  - VISION BLURRED [None]
  - VISUAL ACUITY REDUCED [None]
